FAERS Safety Report 9230242 (Version 3)
Quarter: 2013Q2

REPORT INFORMATION
  Report Type: Spontaneous
  Country: US (occurrence: None)
  Receive Date: 20130411
  Receipt Date: 20130514
  Transmission Date: 20140414
  Serious: Yes (Other)
  Sender: FDA-Public Use
  Company Number: JPI-P-030979

PATIENT
  Age: 31 Year
  Sex: Male

DRUGS (1)
  1. XYREM (500 MILLIGRAM/MILLILITERS, SOLUTION) (SODIUM OXYBATE) [Suspect]
     Indication: NARCOLEPSY
     Dosage: 4.5 GM ( 2.25 GM, 2 IN 1 D)
     Route: 048
     Dates: start: 20120702

REACTIONS (4)
  - Knee operation [None]
  - Joint injury [None]
  - Swelling [None]
  - Joint swelling [None]
